FAERS Safety Report 6261757-0 (Version None)
Quarter: 2009Q3

REPORT INFORMATION
  Report Type: 
  Country: None (occurrence: None)
  Receive Date: 20090707
  Receipt Date: 20090707
  Transmission Date: 20100115
  Serious: Yes (Other)
  Sender: FDA-Public Use
  Company Number: None

PATIENT
  Age: 29 Year
  Sex: Female
  Weight: 65.7716 kg

DRUGS (1)
  1. TOPIRAMATE [Suspect]
     Indication: MIGRAINE PROPHYLAXIS
     Dosage: 1 PER DAY PO
     Route: 048
     Dates: start: 20090501, end: 20090701

REACTIONS (7)
  - CONDITION AGGRAVATED [None]
  - CONVULSION [None]
  - DIZZINESS [None]
  - FEAR [None]
  - LOSS OF CONSCIOUSNESS [None]
  - MIGRAINE [None]
  - PRODUCT SUBSTITUTION ISSUE [None]
